FAERS Safety Report 13673235 (Version 1)
Quarter: 2017Q2

REPORT INFORMATION
  Report Type: Spontaneous
  Country: US (occurrence: US)
  Receive Date: 20170621
  Receipt Date: 20170621
  Transmission Date: 20170830
  Serious: Yes (Other)
  Sender: FDA-Public Use
  Company Number: US-CIPLA LTD.-2017US06371

PATIENT

DRUGS (2)
  1. BUPROPION HYDROCHLORIDE XL [Suspect]
     Active Substance: BUPROPION HYDROCHLORIDE
     Dosage: UNK
     Route: 065
     Dates: start: 20170404
  2. BUPROPION HYDROCHLORIDE XL [Suspect]
     Active Substance: BUPROPION HYDROCHLORIDE
     Dosage: 150 MG, UNK
     Route: 048

REACTIONS (9)
  - Drug ineffective [Unknown]
  - Weight increased [Unknown]
  - Major depression [Unknown]
  - Suicidal ideation [Unknown]
  - Headache [Unknown]
  - Intentional self-injury [Unknown]
  - Disturbance in attention [Unknown]
  - Product substitution issue [Unknown]
  - Panic attack [Unknown]
